FAERS Safety Report 15650945 (Version 4)
Quarter: 2020Q1

REPORT INFORMATION
  Report Type: Report from Study
  Country: None (occurrence: JP)
  Receive Date: 20181123
  Receipt Date: 20200326
  Transmission Date: 20200409
  Serious: Yes (Hospitalization)
  Sender: FDA-Public Use
  Company Number: JP-ABBVIE-17K-087-2118120-00

PATIENT
  Age: 69 Year
  Sex: Male
  Weight: 56 kg

DRUGS (14)
  1. DUODOPA [Suspect]
     Active Substance: CARBIDOPA\LEVODOPA
     Dosage: MD: 6 ML, CD: 1.8 ML/HR. X 16 HR.
     Route: 050
     Dates: start: 20171013, end: 20171016
  2. ROTIGOTINE [Concomitant]
     Active Substance: ROTIGOTINE
     Route: 062
     Dates: start: 20171204, end: 20171214
  3. DUODOPA [Suspect]
     Active Substance: CARBIDOPA\LEVODOPA
     Indication: PARKINSON^S DISEASE
     Dosage: MD: 5 ML, CD: 1.5 ML/HR. X 16 HR.
     Route: 050
     Dates: start: 20170921, end: 20171013
  4. DROXIDOPA [Concomitant]
     Active Substance: DROXIDOPA
     Indication: ORTHOSTATIC HYPOTENSION
  5. FLUDROCORTISONE ACETATE. [Concomitant]
     Active Substance: FLUDROCORTISONE ACETATE
     Indication: ORTHOSTATIC HYPOTENSION
     Route: 048
     Dates: end: 20181217
  6. DROXIDOPA [Concomitant]
     Active Substance: DROXIDOPA
     Indication: GAIT DISTURBANCE
     Route: 048
  7. ROTIGOTINE [Concomitant]
     Active Substance: ROTIGOTINE
     Indication: PARKINSON^S DISEASE
     Dosage: THE AMOUNT OF LEVODOPA CONVERTED TO 16-HOUR DOSE DURING DAYTIME?WAS 13.5 MG.
     Route: 062
     Dates: end: 20171010
  8. ROTIGOTINE [Concomitant]
     Active Substance: ROTIGOTINE
     Route: 062
     Dates: start: 20171027, end: 20171204
  9. ROTIGOTINE [Concomitant]
     Active Substance: ROTIGOTINE
     Route: 062
     Dates: start: 20171010, end: 20171027
  10. ROTIGOTINE [Concomitant]
     Active Substance: ROTIGOTINE
     Route: 062
     Dates: start: 20171214, end: 20180126
  11. DAISAIKOTO [Concomitant]
     Active Substance: HERBALS
     Indication: PRODUCT USED FOR UNKNOWN INDICATION
     Route: 048
  12. DUODOPA [Suspect]
     Active Substance: CARBIDOPA\LEVODOPA
     Dosage: MD: 7 ML, CD: 2.1 ML/HR. X 16 HR.
     Route: 050
     Dates: start: 20171016, end: 20171214
  13. DUODOPA [Suspect]
     Active Substance: CARBIDOPA\LEVODOPA
     Dosage: MD: 7 ML, CD: 2.1 ML/HR X 16 HR, ED: 1 ML/UNIT X 1
     Route: 050
     Dates: start: 20171214
  14. TSUDOSAN [Concomitant]
     Active Substance: HERBALS
     Indication: PRODUCT USED FOR UNKNOWN INDICATION
     Route: 048

REACTIONS (7)
  - Fall [Unknown]
  - Femoral neck fracture [Recovering/Resolving]
  - Device deployment issue [Unknown]
  - Device expulsion [Recovered/Resolved]
  - Hypoaesthesia [Unknown]
  - Device colour issue [Not Recovered/Not Resolved]
  - Device dislocation [Not Recovered/Not Resolved]

NARRATIVE: CASE EVENT DATE: 20170921
